FAERS Safety Report 4702569-6 (Version None)
Quarter: 2005Q2

REPORT INFORMATION
  Report Type: 
  Country: None (occurrence: None)
  Receive Date: 20050629
  Receipt Date: 20040928
  Transmission Date: 20051028
  Serious: Yes (Hospitalization, Other)
  Sender: FDA-Public Use
  Company Number: US-AMGEN-US091524

PATIENT
  Sex: Female

DRUGS (10)
  1. SENSIPAR [Suspect]
     Indication: HYPERPARATHYROIDISM SECONDARY
     Route: 048
     Dates: start: 20040428
  2. DIFLUCAN [Suspect]
     Indication: INFECTION
     Dates: start: 20040826, end: 20040901
  3. EPOGEN [Concomitant]
  4. VALIUM [Concomitant]
  5. AMBIEN [Concomitant]
  6. RENAGEL [Concomitant]
  7. ZYRTEC [Concomitant]
  8. KEFLEX [Concomitant]
     Dates: start: 20040721, end: 20040728
  9. VANCOMYCIN [Concomitant]
     Dates: start: 20040728, end: 20040728
  10. HECTORAL [Concomitant]
     Dates: end: 20040920

REACTIONS (8)
  - BLOOD ALKALINE PHOSPHATASE INCREASED [None]
  - FEELING ABNORMAL [None]
  - HEPATIC NECROSIS [None]
  - HEPATITIS ACUTE [None]
  - HYPERCALCAEMIA [None]
  - JAUNDICE [None]
  - NEURODERMATITIS [None]
  - SPLENOMEGALY [None]
